FAERS Safety Report 13587528 (Version 1)
Quarter: 2017Q2

REPORT INFORMATION
  Report Type: Spontaneous
  Country: US (occurrence: US)
  Receive Date: 20170526
  Receipt Date: 20170526
  Transmission Date: 20170830
  Serious: Yes (Hospitalization)
  Sender: FDA-Public Use
  Company Number: None

PATIENT
  Age: 67 Year
  Sex: Female
  Weight: 71.3 kg

DRUGS (2)
  1. METHOTREXATE. [Suspect]
     Active Substance: METHOTREXATE
     Dates: end: 20170424
  2. ONCASPAR [Suspect]
     Active Substance: PEGASPARGASE
     Dates: end: 20170425

REACTIONS (6)
  - Retching [None]
  - Fatigue [None]
  - Nausea [None]
  - Dehydration [None]
  - Hepatic steatosis [None]
  - Mixed liver injury [None]

NARRATIVE: CASE EVENT DATE: 20170515
